FAERS Safety Report 10018152 (Version 1)
Quarter: 2014Q1

REPORT INFORMATION
  Report Type: Spontaneous
  Country: US (occurrence: None)
  Receive Date: 20140313
  Receipt Date: 20140313
  Transmission Date: 20141002
  Serious: Yes (Life-Threatening, Disabling)
  Sender: FDA-Public Use
  Company Number: None

PATIENT
  Age: 46 Year
  Sex: Male
  Weight: 122.47 kg

DRUGS (8)
  1. CHANTIX [Suspect]
     Indication: EX-TOBACCO USER
     Route: 048
     Dates: start: 20070516, end: 200706
  2. ATENOLOL [Concomitant]
  3. LISINOPRIL [Concomitant]
  4. PRAVASTATIN [Concomitant]
  5. PAROXETINE [Concomitant]
  6. CLONAZEPAM [Concomitant]
  7. CPAP [Concomitant]
  8. TYLONAL [Concomitant]

REACTIONS (14)
  - Depression [None]
  - Anxiety [None]
  - Anger [None]
  - Suicidal ideation [None]
  - Dizziness [None]
  - Panic disorder [None]
  - Activities of daily living impaired [None]
  - Impaired work ability [None]
  - Nightmare [None]
  - Abnormal dreams [None]
  - Fall [None]
  - Headache [None]
  - Feeling abnormal [None]
  - Mood altered [None]
